FAERS Safety Report 6765687-7 (Version None)
Quarter: 2010Q2

REPORT INFORMATION
  Report Type: 
  Country: None (occurrence: None)
  Receive Date: 20100611
  Receipt Date: 20100601
  Transmission Date: 20101027
  Serious: Yes (Other)
  Sender: FDA-Public Use
  Company Number: US-ELI_LILLY_AND_COMPANY-US201005000208

PATIENT
  Sex: Female

DRUGS (6)
  1. BYETTA [Suspect]
     Indication: TYPE 2 DIABETES MELLITUS
     Dosage: 10 UG, 2/D
     Dates: start: 20100331, end: 20100426
  2. METFORMIN [Concomitant]
     Indication: DIABETES MELLITUS
     Dosage: 500 MG, 2/D
     Route: 048
     Dates: start: 20090904
  3. ACTOS /SCH/ [Concomitant]
     Indication: DIABETES MELLITUS
     Dosage: 15 MG, DAILY (1/D)
     Route: 048
     Dates: start: 20010101
  4. DIOVAN [Concomitant]
     Indication: HYPERTENSION
     Dosage: 1 D/F, DAILY (1/D)
     Route: 048
     Dates: start: 20010101
  5. VITAMIN TAB [Concomitant]
  6. JANUVIA [Concomitant]
     Indication: DIABETES MELLITUS
     Dates: start: 20100120

REACTIONS (3)
  - ANGIOEDEMA [None]
  - BLOOD PRESSURE FLUCTUATION [None]
  - OXYGEN SATURATION [None]
